FAERS Safety Report 6597813-7 (Version None)
Quarter: 2010Q1

REPORT INFORMATION
  Report Type: 
  Country: None (occurrence: None)
  Receive Date: 20100216
  Receipt Date: 20100202
  Transmission Date: 20100710
  Serious: Yes (Disabling)
  Sender: FDA-Public Use
  Company Number: 231143J10USA

PATIENT
  Sex: Female

DRUGS (1)
  1. REBIF [Suspect]
     Indication: MULTIPLE SCLEROSIS

REACTIONS (6)
  - ABASIA [None]
  - BLINDNESS [None]
  - HYPOAESTHESIA [None]
  - IMPAIRED HEALING [None]
  - INJECTION SITE REACTION [None]
  - MYDRIASIS [None]
